FAERS Safety Report 20292636 (Version 1)
Quarter: 2022Q1

REPORT INFORMATION
  Report Type: Spontaneous
  Country: US (occurrence: US)
  Receive Date: 20220104
  Receipt Date: 20220104
  Transmission Date: 20220423
  Serious: No
  Sender: FDA-Public Use
  Company Number: US-COOPERSURGICAL, INC.-US-2020CPS003218

PATIENT
  Sex: Female
  Weight: 62.585 kg

DRUGS (4)
  1. PARAGARD T 380A [Suspect]
     Active Substance: COPPER
     Indication: Contraception
     Dosage: UNK
     Route: 015
     Dates: start: 20190130
  2. VITAMIN E                          /00110501/ [Concomitant]
     Indication: Product used for unknown indication
     Route: 065
  3. VITAMIN D                          /00107901/ [Concomitant]
     Indication: Product used for unknown indication
     Route: 065
  4. MULTI VITAMIN                      /08408501/ [Concomitant]
     Indication: Product used for unknown indication
     Route: 065

REACTIONS (1)
  - Device expulsion [Recovered/Resolved]
